FAERS Safety Report 7714055-X (Version None)
Quarter: 2011Q3

REPORT INFORMATION
  Report Type: 
  Country: None (occurrence: None)
  Receive Date: 20110826
  Receipt Date: 20110729
  Transmission Date: 20111222
  Serious: Yes (Hospitalization, Other)
  Sender: FDA-Public Use
  Company Number: PHHY2011US06975

PATIENT
  Sex: Male
  Weight: 94.9 kg

DRUGS (8)
  1. EXJADE [Suspect]
     Indication: MYELODYSPLASTIC SYNDROME
     Dosage: 1000 MG, QD
     Route: 048
     Dates: start: 20101201, end: 20110211
  2. BLOOD TRANSFUSION, AUXILIARY PRODUCTS [Concomitant]
  3. BACTRIM DS [Concomitant]
     Dosage: 4 MG, QD
     Route: 048
     Dates: start: 20100301
  4. ANTIBIOTICS [Concomitant]
  5. DAEOGEN [Concomitant]
     Route: 042
  6. ZOCOR [Concomitant]
     Dosage: 40 MG, UNK
     Route: 048
  7. JANUVIA [Concomitant]
     Dosage: 50 MG, UNK
     Route: 048
  8. LANTUS [Concomitant]
     Dosage: 25 U, UNK
     Route: 058

REACTIONS (5)
  - INFLUENZA [None]
  - GOUT [None]
  - SINUSITIS [None]
  - BLOOD CREATININE INCREASED [None]
  - SERUM FERRITIN INCREASED [None]
